FAERS Safety Report 19990437 (Version 4)
Quarter: 2021Q4

REPORT INFORMATION
  Report Type: Report from Study
  Country: KR (occurrence: KR)
  Receive Date: 20211025
  Receipt Date: 20211204
  Transmission Date: 20220304
  Serious: Yes (Death, Hospitalization)
  Sender: FDA-Public Use
  Company Number: KR-NOVARTISPH-NVSC2021KR241188

PATIENT
  Age: 42 Year
  Sex: Female
  Weight: 55.4 kg

DRUGS (40)
  1. RIBOCICLIB [Suspect]
     Active Substance: RIBOCICLIB
     Indication: Hormone receptor positive HER2 negative breast cancer
     Dosage: 600 MG, QD
     Route: 048
     Dates: start: 20210929, end: 20210929
  2. FEMARA [Concomitant]
     Active Substance: LETROZOLE
     Indication: Hormone therapy
     Dosage: 2.5 MG, QD
     Route: 048
     Dates: start: 20210929, end: 20210929
  3. CAVID [Concomitant]
     Indication: Prophylaxis
     Dosage: 1 DF, QD
     Route: 048
     Dates: start: 20210929, end: 20211027
  4. GODEX [Concomitant]
     Indication: Aspartate aminotransferase decreased
     Dosage: 1 DF, QD (1 CAP/PER DAY)
     Route: 048
     Dates: start: 20210927, end: 20211027
  5. FENTORA [Concomitant]
     Active Substance: FENTANYL CITRATE
     Indication: Pain
     Dosage: 1 DF, QD (1TAB/DAY)
     Route: 048
     Dates: start: 20210929, end: 20211019
  6. FENTORA [Concomitant]
     Active Substance: FENTANYL CITRATE
     Dosage: 1 DF, QD
     Route: 048
     Dates: start: 20211021, end: 20211027
  7. ORNITHINE ASPARTATE [Concomitant]
     Active Substance: ORNITHINE ASPARTATE
     Indication: Aspartate aminotransferase decreased
     Dosage: 2000 MG, QD
     Route: 042
     Dates: start: 20210927, end: 20210929
  8. ORNITHINE ASPARTATE [Concomitant]
     Active Substance: ORNITHINE ASPARTATE
     Dosage: 2000 MG
     Route: 065
     Dates: start: 20211019, end: 20211019
  9. ORNITHINE ASPARTATE [Concomitant]
     Active Substance: ORNITHINE ASPARTATE
     Dosage: 2000 MG
     Route: 065
     Dates: start: 20211023, end: 20211028
  10. PROPACETAMOL HYDROCHLORIDE [Concomitant]
     Active Substance: PROPACETAMOL HYDROCHLORIDE
     Indication: Pain
     Dosage: 1 G, QD
     Route: 042
     Dates: start: 20210928, end: 20210929
  11. PROPACETAMOL HYDROCHLORIDE [Concomitant]
     Active Substance: PROPACETAMOL HYDROCHLORIDE
     Dosage: 2 G
     Route: 065
     Dates: start: 20211023, end: 20211029
  12. FREAMINE III NOS [Concomitant]
     Active Substance: AMINO ACIDS
     Indication: Prophylaxis
     Dosage: 500 ML, QD
     Route: 042
     Dates: start: 20210928, end: 20210929
  13. FREAMINE III NOS [Concomitant]
     Active Substance: AMINO ACIDS
     Dosage: 500 MG
     Route: 065
     Dates: start: 20211019, end: 20211028
  14. LASIX [Concomitant]
     Active Substance: FUROSEMIDE
     Indication: Prophylaxis
     Dosage: 20 MG, QD
     Route: 042
     Dates: start: 20210927, end: 20210929
  15. LASIX [Concomitant]
     Active Substance: FUROSEMIDE
     Dosage: 20 MG
     Route: 042
     Dates: start: 20211019, end: 20211027
  16. ZOLADEX [Concomitant]
     Active Substance: GOSERELIN ACETATE
     Indication: Hormone therapy
     Dosage: 3.6 MG, QD
     Route: 058
     Dates: start: 20210929, end: 20210929
  17. XGEVA [Concomitant]
     Active Substance: DENOSUMAB
     Indication: Metastases to bone
     Dosage: 120 MG, QD
     Route: 058
     Dates: start: 20210929, end: 20210929
  18. TYLENOL 8HR [Concomitant]
     Active Substance: ACETAMINOPHEN
     Indication: Pain
     Dosage: 1 DF, QD
     Route: 048
     Dates: start: 20210929, end: 20211027
  19. ULTRACET [Concomitant]
     Active Substance: ACETAMINOPHEN\TRAMADOL HYDROCHLORIDE
     Indication: Pain
     Dosage: 1 DF, QD
     Route: 048
     Dates: start: 20210908
  20. ULTRACET [Concomitant]
     Active Substance: ACETAMINOPHEN\TRAMADOL HYDROCHLORIDE
     Dosage: 1 DF, QD
     Route: 048
     Dates: start: 20210929, end: 20211004
  21. LOPERAMIDE [Concomitant]
     Active Substance: LOPERAMIDE
     Indication: Prophylaxis
     Dosage: 8 DF, QD
     Route: 048
     Dates: start: 20210929, end: 20211004
  22. NORZYME [Concomitant]
     Indication: Dyspepsia
     Dosage: 1 DF, QD
     Route: 048
     Dates: start: 20210928, end: 20211004
  23. METOCLOPRAMIDE HYDROCHLORIDE [Concomitant]
     Active Substance: METOCLOPRAMIDE HYDROCHLORIDE
     Indication: Prophylaxis
     Dosage: 2 DF, QD
     Route: 048
     Dates: start: 20210929, end: 20211013
  24. LASIX [Concomitant]
     Active Substance: FUROSEMIDE
     Indication: Prophylaxis
     Dosage: 1 DF, QD
     Route: 048
     Dates: start: 20210929, end: 20211021
  25. CEPHAMETHYL [Concomitant]
     Indication: Prophylaxis
     Dosage: 1 DF, QD
     Route: 048
     Dates: start: 20210929, end: 20211013
  26. METOCLOPRAMIDE HYDROCHLORIDE [Concomitant]
     Active Substance: METOCLOPRAMIDE HYDROCHLORIDE
     Indication: Prophylaxis
     Dosage: 10 MG
     Route: 065
     Dates: start: 20210928, end: 20210929
  27. METOCLOPRAMIDE HYDROCHLORIDE [Concomitant]
     Active Substance: METOCLOPRAMIDE HYDROCHLORIDE
     Dosage: 10 MG
     Route: 065
     Dates: start: 20211023, end: 20211025
  28. ALBUMIN HUMAN [Concomitant]
     Active Substance: ALBUMIN HUMAN
     Indication: Aspartate aminotransferase decreased
     Dosage: 100 ML
     Route: 065
     Dates: start: 20211019, end: 20211028
  29. MOSAPRIDE CITRATE [Concomitant]
     Active Substance: MOSAPRIDE CITRATE
     Indication: Dyspepsia
     Dosage: 1 DF, QD
     Route: 048
     Dates: start: 20211020, end: 20211020
  30. AKYNZEO [Concomitant]
     Active Substance: NETUPITANT\PALONOSETRON HYDROCHLORIDE
     Indication: Prophylaxis
     Dosage: UNK
     Route: 048
     Dates: start: 20211020, end: 20211020
  31. MEPERIDINE HYDROCHLORIDE [Concomitant]
     Active Substance: MEPERIDINE HYDROCHLORIDE
     Indication: Pain
     Dosage: 25 MG, QD
     Route: 030
     Dates: start: 20211020, end: 20211021
  32. MEPERIDINE HYDROCHLORIDE [Concomitant]
     Active Substance: MEPERIDINE HYDROCHLORIDE
     Dosage: 25 MG, QD
     Route: 030
     Dates: start: 20211025, end: 20211025
  33. DEXAMETHASONE SODIUM PHOSPHATE [Concomitant]
     Active Substance: DEXAMETHASONE SODIUM PHOSPHATE
     Indication: Prophylaxis
     Dosage: 8 MG, QD
     Route: 042
     Dates: start: 20211020, end: 20211023
  34. GENEXOL [Concomitant]
     Indication: Breast cancer
     Dosage: 100 MG, QD
     Route: 042
     Dates: start: 20211021, end: 20211021
  35. GENEXOL [Concomitant]
     Dosage: 59.6 MG, QD
     Route: 042
     Dates: start: 20211021, end: 20211021
  36. CISPLATIN [Concomitant]
     Active Substance: CISPLATIN
     Indication: Breast cancer
     Dosage: 457.5 MG, QD
     Route: 042
     Dates: start: 20211021, end: 20211021
  37. MAGNESIUM HYDROXIDE [Concomitant]
     Active Substance: MAGNESIUM HYDROXIDE
     Indication: Dyspepsia
     Dosage: 1 DF, QD
     Route: 048
     Dates: start: 20211023, end: 20211023
  38. LYRICA [Concomitant]
     Active Substance: PREGABALIN
     Indication: Pain
     Dosage: 1 DF, QD
     Route: 048
     Dates: start: 20211026, end: 20211027
  39. NORPIN [Concomitant]
     Indication: Prophylaxis
     Dosage: 16 ML, QD
     Route: 042
     Dates: start: 20211028, end: 20211028
  40. CALCIUM GLUCONATE [Concomitant]
     Active Substance: CALCIUM GLUCONATE
     Indication: Prophylaxis
     Dosage: 20 ML, QD
     Route: 042
     Dates: start: 20211022, end: 20211028

REACTIONS (4)
  - Hormone receptor positive HER2 negative breast cancer [Fatal]
  - Malignant neoplasm progression [Fatal]
  - Oedema [Not Recovered/Not Resolved]
  - Dyspnoea [Not Recovered/Not Resolved]

NARRATIVE: CASE EVENT DATE: 20211018
